FAERS Safety Report 19309742 (Version 1)
Quarter: 2021Q2

REPORT INFORMATION
  Report Type: Report from Study
  Country: US (occurrence: US)
  Receive Date: 20210526
  Receipt Date: 20210526
  Transmission Date: 20210717
  Serious: Yes (Hospitalization)
  Sender: FDA-Public Use
  Company Number: US-SHIRE-US202010669

PATIENT
  Age: 63 Year
  Sex: Female

DRUGS (1)
  1. HUMAN IMMUNOGLOBULIN; HYALURONIDASE [Suspect]
     Active Substance: HUMAN IMMUNOGLOBULIN G\HYALURONIDASE RECOMBINANT HUMAN
     Indication: PRIMARY IMMUNODEFICIENCY SYNDROME
     Dosage: 20 GRAM, 1/WEEK
     Route: 065

REACTIONS (8)
  - Amnesia [Unknown]
  - Illness [Recovered/Resolved]
  - Psychiatric symptom [Unknown]
  - Limb injury [Unknown]
  - COVID-19 [Not Recovered/Not Resolved]
  - Inappropriate schedule of product administration [Unknown]
  - Influenza [Unknown]
  - Dysstasia [Unknown]

NARRATIVE: CASE EVENT DATE: 201904
